FAERS Safety Report 17197931 (Version 4)
Quarter: 2020Q2

REPORT INFORMATION
  Report Type: Report from Study
  Country: US (occurrence: US)
  Receive Date: 20191225
  Receipt Date: 20200618
  Transmission Date: 20200713
  Serious: No
  Sender: FDA-Public Use
  Company Number: NVSC2019US077726

PATIENT
  Age: 52 Year
  Sex: Female

DRUGS (2)
  1. ILARIS [Suspect]
     Active Substance: CANAKINUMAB
     Indication: ARTHROPATHY
     Dosage: 150 MG, Q3W
     Route: 058
     Dates: start: 20181214
  2. ILARIS [Suspect]
     Active Substance: CANAKINUMAB
     Indication: JUVENILE IDIOPATHIC ARTHRITIS
     Dosage: 300 MG, Q4W
     Route: 058
     Dates: start: 20191014

REACTIONS (10)
  - Pyrexia [Unknown]
  - Oropharyngeal pain [Unknown]
  - Influenza like illness [Unknown]
  - Malaise [Unknown]
  - Chills [Unknown]
  - Irritable bowel syndrome [Unknown]
  - Immunoglobulins increased [Not Recovered/Not Resolved]
  - Therapy non-responder [Unknown]
  - Bone pain [Not Recovered/Not Resolved]
  - Incorrect dose administered [Unknown]

NARRATIVE: CASE EVENT DATE: 202005
